FAERS Safety Report 4962350-X (Version None)
Quarter: 2006Q2

REPORT INFORMATION
  Report Type: 
  Country: None (occurrence: None)
  Receive Date: 20060403
  Receipt Date: 20060403
  Transmission Date: 20061013
  Serious: No
  Sender: FDA-Public Use
  Company Number: None

PATIENT

DRUGS (1)
  1. LEVITRA [Suspect]
     Indication: ERECTILE DYSFUNCTION
     Dosage: 5MG PO 1 HOUR PRIOR TO INTERCOURSE
     Route: 048
     Dates: start: 20060101

REACTIONS (1)
  - HEADACHE [None]
